FAERS Safety Report 18612144 (Version 1)
Quarter: 2020Q4

REPORT INFORMATION
  Report Type: Spontaneous
  Country: DE (occurrence: DE)
  Receive Date: 20201214
  Receipt Date: 20201214
  Transmission Date: 20210114
  Serious: No
  Sender: FDA-Public Use
  Company Number: DE-HORMOSAN PHARMA GMBH-2020-04959

PATIENT
  Sex: Female

DRUGS (1)
  1. ZIPRASIDONE-HORMOSAN HARTKAPSELN [Suspect]
     Active Substance: ZIPRASIDONE HYDROCHLORIDE
     Indication: ANXIETY DISORDER
     Dosage: 20 MILLIGRAM, BID
     Route: 048
     Dates: start: 2016

REACTIONS (4)
  - Musculoskeletal stiffness [Unknown]
  - Parkinsonism [Unknown]
  - Condition aggravated [Unknown]
  - Gait disturbance [Unknown]
